FAERS Safety Report 8351250-3 (Version None)
Quarter: 2012Q2

REPORT INFORMATION
  Report Type: 
  Country: None (occurrence: None)
  Receive Date: 20120510
  Receipt Date: 20120507
  Transmission Date: 20120825
  Serious: Yes (Other)
  Sender: FDA-Public Use
  Company Number: US-PFIZER INC-2012110652

PATIENT
  Sex: Female
  Weight: 72.6 kg

DRUGS (1)
  1. REVATIO [Suspect]
     Indication: SCLERODERMA
     Dosage: 200 MG, 3X/DAY

REACTIONS (1)
  - DIGITAL ULCER [None]
